FAERS Safety Report 23447716 (Version 1)
Quarter: 2024Q1

REPORT INFORMATION
  Report Type: Spontaneous
  Country: DE (occurrence: None)
  Receive Date: 20240126
  Receipt Date: 20240126
  Transmission Date: 20240409
  Serious: Yes (Other)
  Sender: FDA-Public Use
  Company Number: 2024A019591

PATIENT
  Age: 62 Year
  Sex: Male

DRUGS (4)
  1. DURVALUMAB [Suspect]
     Active Substance: DURVALUMAB
     Dosage: UNKNOWN
     Route: 042
  2. CISPLATIN [Concomitant]
     Active Substance: CISPLATIN
     Dosage: 20.0MG UNKNOWN
  3. VINORELBINE [Concomitant]
     Active Substance: VINORELBINE TARTRATE
     Dosage: 12.5MG UNKNOWN
  4. PALLADONE [Concomitant]
     Active Substance: HYDROMORPHONE HYDROCHLORIDE
     Dosage: 4.0MG UNKNOWN

REACTIONS (3)
  - Hypoaesthesia [Unknown]
  - Spinal fracture [Unknown]
  - Malignant neoplasm progression [Unknown]
